FAERS Safety Report 12718429 (Version 1)
Quarter: 2016Q3

REPORT INFORMATION
  Report Type: Not Available
  Country: None (occurrence: US)
  Receive Date: 20160906
  Receipt Date: 20160906
  Transmission Date: 20161109
  Serious: No
  Sender: FDA-Public Use
  Company Number: US-AKORN-37953

PATIENT
  Sex: Male

DRUGS (1)
  1. TOBRAMYCIN 40 MG/ML INJECTION, USP [Suspect]
     Active Substance: TOBRAMYCIN

REACTIONS (2)
  - Rash [Unknown]
  - Swelling [Unknown]
